FAERS Safety Report 16535103 (Version 1)
Quarter: 2019Q3

REPORT INFORMATION
  Report Type: Spontaneous
  Country: US (occurrence: US)
  Receive Date: 20190705
  Receipt Date: 20190705
  Transmission Date: 20191004
  Serious: No
  Sender: FDA-Public Use
  Company Number: US-009507513-1907USA002479

PATIENT
  Age: 15 Year
  Sex: Female

DRUGS (1)
  1. NEXPLANON [Suspect]
     Active Substance: ETONOGESTREL
     Dosage: 1 DOSAGE FORM
     Route: 059
     Dates: start: 201902, end: 20190703

REACTIONS (4)
  - Incision site complication [Unknown]
  - Complication of device removal [Recovered/Resolved]
  - Menstrual disorder [Unknown]
  - Dehiscence [Unknown]

NARRATIVE: CASE EVENT DATE: 20190703
